FAERS Safety Report 5334454-3 (Version None)
Quarter: 2007Q2

REPORT INFORMATION
  Report Type: 
  Country: None (occurrence: None)
  Receive Date: 20070523
  Receipt Date: 20070523
  Transmission Date: 20071010
  Serious: Yes (Other)
  Sender: FDA-Public Use
  Company Number: None

PATIENT
  Age: 45 Year
  Sex: Male
  Weight: 102.0593 kg

DRUGS (3)
  1. NORDITROPIN NORDIFLEX [Suspect]
     Indication: HYPOPITUITARISM
     Dosage: 0.7 MILLIGRAMS PER DAY DAILY SQ
     Route: 058
     Dates: start: 20070223, end: 20070522
  2. TESTOSTERONE ENANTHATE [Suspect]
     Indication: BLOOD TESTOSTERONE DECREASED
     Dosage: 1CC-200 MILLIGRAMS EVERY TWO WEEKS IM
     Route: 030
     Dates: start: 20000506, end: 20070522
  3. TESTOSTERONE ENANTHATE [Suspect]
     Indication: HYPOGONADISM
     Dosage: 1CC-200 MILLIGRAMS EVERY TWO WEEKS IM
     Route: 030
     Dates: start: 20000506, end: 20070522

REACTIONS (1)
  - DRUG PRESCRIBING ERROR [None]
